FAERS Safety Report 23824283 (Version 3)
Quarter: 2024Q3

REPORT INFORMATION
  Report Type: Spontaneous
  Country: CA (occurrence: CA)
  Receive Date: 20240507
  Receipt Date: 20240722
  Transmission Date: 20241016
  Serious: Yes (Other)
  Sender: CELLTRION
  Company Number: CA-PFIZER INC-PV202400047912

PATIENT

DRUGS (9)
  1. INFLECTRA [Suspect]
     Active Substance: INFLIXIMAB-DYYB
     Indication: Crohn^s disease
     Dosage: 5 MG/KG, INDUCTION W0,2,6, THEN MAINTENANCE Q8 WEEKS
     Dates: start: 20221102, end: 20230208
  2. INFLECTRA [Suspect]
     Active Substance: INFLIXIMAB-DYYB
     Dosage: 10 MG/KG, EVERY 8 WEEKS
     Dates: start: 20230406, end: 20230726
  3. INFLECTRA [Suspect]
     Active Substance: INFLIXIMAB-DYYB
     Dosage: 10 MG/KG, EVERY 6 WEEKS
     Dates: start: 20230913
  4. INFLECTRA [Suspect]
     Active Substance: INFLIXIMAB-DYYB
     Dosage: 10 MG/KG
     Route: 042
     Dates: start: 20240228, end: 20240228
  5. INFLECTRA [Suspect]
     Active Substance: INFLIXIMAB-DYYB
     Dosage: 10 MG/KG (409 MG)
     Route: 042
     Dates: start: 20240409, end: 20240409
  6. INFLECTRA [Suspect]
     Active Substance: INFLIXIMAB-DYYB
     Dosage: 400 MG
     Route: 042
     Dates: start: 20240530
  7. INFLECTRA [Suspect]
     Active Substance: INFLIXIMAB-DYYB
     Dosage: 400 MG
     Route: 042
     Dates: start: 20240710
  8. DIPHENHYDRAMINE [Concomitant]
     Active Substance: DIPHENHYDRAMINE
     Indication: Premedication
     Dosage: 25 MG
     Route: 048
     Dates: start: 20240404, end: 20240404
  9. ACETAMINOPHEN [Concomitant]
     Active Substance: ACETAMINOPHEN
     Indication: Premedication
     Dosage: 325 MG
     Route: 048
     Dates: start: 20240404, end: 20240404

REACTIONS (15)
  - Blood iron decreased [Not Recovered/Not Resolved]
  - Iron binding capacity total increased [Not Recovered/Not Resolved]
  - Transferrin saturation decreased [Not Recovered/Not Resolved]
  - Serum ferritin decreased [Not Recovered/Not Resolved]
  - Tooth extraction [Recovering/Resolving]
  - Bone graft [Recovering/Resolving]
  - Gingival disorder [Unknown]
  - Drug ineffective [Unknown]
  - Condition aggravated [Not Recovered/Not Resolved]
  - Post procedural inflammation [Unknown]
  - Chills [Not Recovered/Not Resolved]
  - Malabsorption [Not Recovered/Not Resolved]
  - Vitamin B12 decreased [Not Recovered/Not Resolved]
  - Malaise [Not Recovered/Not Resolved]
  - Noninfective gingivitis [Unknown]

NARRATIVE: CASE EVENT DATE: 20240101
